FAERS Safety Report 16067985 (Version 1)
Quarter: 2019Q1

REPORT INFORMATION
  Report Type: Spontaneous
  Country: PR (occurrence: PR)
  Receive Date: 20190313
  Receipt Date: 20190313
  Transmission Date: 20190418
  Serious: Yes (Death)
  Sender: FDA-Public Use
  Company Number: PR-PFIZER INC-2019110099

PATIENT
  Age: 74 Year
  Sex: Female
  Weight: 54.42 kg

DRUGS (2)
  1. IBRANCE [Suspect]
     Active Substance: PALBOCICLIB
     Indication: BREAST CANCER FEMALE
     Dosage: 125 MG, CYCLIC(1 CAP DAILY AND 7 DAYS OFF)
     Route: 048
     Dates: start: 20171023
  2. IBRANCE [Suspect]
     Active Substance: PALBOCICLIB
     Dosage: 125 MG, CYCLIC (1 CAPSULE DAILY 1-21/DAYS)
     Route: 048
     Dates: start: 20190218

REACTIONS (1)
  - Death [Fatal]

NARRATIVE: CASE EVENT DATE: 20190311
